FAERS Safety Report 18109395 (Version 1)
Quarter: 2020Q3

REPORT INFORMATION
  Report Type: Spontaneous
  Country: US (occurrence: US)
  Receive Date: 20200804
  Receipt Date: 20200804
  Transmission Date: 20201103
  Serious: Yes (Life-Threatening)
  Sender: FDA-Public Use
  Company Number: None

PATIENT
  Age: 73 Year
  Sex: Male
  Weight: 63.2 kg

DRUGS (9)
  1. ENOXAPARIN INJECTION [Concomitant]
     Active Substance: ENOXAPARIN
     Dates: start: 20200803
  2. REMDESIVIR. [Suspect]
     Active Substance: REMDESIVIR
     Indication: COVID-19 TREATMENT
     Dosage: ?          OTHER FREQUENCY:ONCE(LOADING DOSE);?
     Route: 041
     Dates: start: 20200803, end: 20200804
  3. PANTOPRAZOLE INJECTION [Concomitant]
     Active Substance: PANTOPRAZOLE
     Dates: start: 20200803
  4. ASPIRIN EC TABLET [Concomitant]
     Dates: start: 20200803
  5. ATORVASTATIN TABLET [Concomitant]
     Active Substance: ATORVASTATIN
     Dates: start: 20200803
  6. LOSARTAN ORAL [Concomitant]
     Dates: start: 20200803
  7. METOPROLOL TARTRATE ORAL [Concomitant]
     Dates: start: 20200802
  8. DEXAMETHASONE INJECTION [Concomitant]
     Active Substance: DEXAMETHASONE
     Dates: start: 20200803
  9. CLOPIDOGREL BISULFATE ORAL [Concomitant]
     Dates: start: 20200803

REACTIONS (2)
  - Alanine aminotransferase increased [None]
  - Therapy cessation [None]

NARRATIVE: CASE EVENT DATE: 20200804
